FAERS Safety Report 5495844-1 (Version None)
Quarter: 2007Q4

REPORT INFORMATION
  Report Type: 
  Country: None (occurrence: None)
  Receive Date: 20071025
  Receipt Date: 20071017
  Transmission Date: 20080405
  Serious: Yes (Hospitalization)
  Sender: FDA-Public Use
  Company Number: SE-AMGEN-US248144

PATIENT
  Sex: Male

DRUGS (2)
  1. ENBREL [Suspect]
     Indication: RHEUMATOID ARTHRITIS
     Dosage: DOSE STRENGTH AND FREQUENCY UNKNOWN
     Dates: start: 20060601
  2. METHOTREXATE [Suspect]

REACTIONS (1)
  - PNEUMONIA [None]
